FAERS Safety Report 5169567-2 (Version None)
Quarter: 2006Q4

REPORT INFORMATION
  Report Type: 
  Country: None (occurrence: None)
  Receive Date: 20061204
  Receipt Date: 20061128
  Transmission Date: 20070319
  Serious: Yes (Hospitalization)
  Sender: FDA-Public Use
  Company Number: 163-20785-06110203

PATIENT
  Age: 81 Year
  Sex: Female

DRUGS (1)
  1. THALOMID [Suspect]
     Indication: MULTIPLE MYELOMA
     Dosage: 200  MG, 2 IN 1 D, ORAL
     Route: 048
     Dates: start: 20061011, end: 20061113

REACTIONS (4)
  - HYPERSENSITIVITY [None]
  - HYPOALBUMINAEMIA [None]
  - LIVER FUNCTION TEST ABNORMAL [None]
  - OEDEMA PERIPHERAL [None]
